FAERS Safety Report 26181782 (Version 1)
Quarter: 2025Q4

REPORT INFORMATION
  Report Type: Spontaneous
  Country: US (occurrence: US)
  Receive Date: 20251221
  Receipt Date: 20251221
  Transmission Date: 20260118
  Serious: No
  Sender: ABBVIE
  Company Number: US-ABBVIE-6595476

PATIENT
  Age: 62 Year
  Sex: Male

DRUGS (5)
  1. BYSTOLIC [Suspect]
     Active Substance: NEBIVOLOL HYDROCHLORIDE
     Indication: Hypertension
     Route: 048
     Dates: start: 2011
  2. HYDRALAZINE [Concomitant]
     Active Substance: HYDRALAZINE HYDROCHLORIDE
     Indication: Hypertension
     Route: 065
  3. CLONIDINE [Concomitant]
     Active Substance: CLONIDINE
     Indication: Hypertension
     Route: 065
  4. NEBIVOLOL [Suspect]
     Active Substance: NEBIVOLOL
     Indication: Hypertension
     Dosage: GENERIC
     Route: 065
  5. NEBIVOLOL [Suspect]
     Active Substance: NEBIVOLOL
     Indication: Hypertension
     Dosage: DOSE INCREASED?GENERIC
     Route: 065
     Dates: start: 2025

REACTIONS (4)
  - Musculoskeletal stiffness [Unknown]
  - Fatigue [Unknown]
  - Fatigue [Unknown]
  - Therapeutic product effect decreased [Unknown]
